FAERS Safety Report 8182760-X (Version None)
Quarter: 2012Q1

REPORT INFORMATION
  Report Type: 
  Country: None (occurrence: None)
  Receive Date: 20120305
  Receipt Date: 20120224
  Transmission Date: 20120608
  Serious: Yes (Hospitalization, Other)
  Sender: FDA-Public Use
  Company Number: US-BAYER-2011-039186

PATIENT
  Age: 23 Year
  Sex: Female
  Weight: 87.075 kg

DRUGS (2)
  1. YASMIN [Suspect]
     Indication: CONTRACEPTION
     Dosage: UNK
     Route: 048
     Dates: start: 20020329, end: 20020708
  2. NAPROXEN [Concomitant]
     Dosage: UNK
     Dates: start: 20020708

REACTIONS (11)
  - PULMONARY EMBOLISM [None]
  - PAIN [None]
  - HAEMOPTYSIS [None]
  - DYSPNOEA [None]
  - PULMONARY INFARCTION [None]
  - GENERAL PHYSICAL HEALTH DETERIORATION [None]
  - DEEP VEIN THROMBOSIS [None]
  - INJURY [None]
  - EMOTIONAL DISTRESS [None]
  - PLEURAL EFFUSION [None]
  - PERICARDIAL EFFUSION [None]
